FAERS Safety Report 14625833 (Version 10)
Quarter: 2018Q4

REPORT INFORMATION
  Report Type: Spontaneous
  Country: FR (occurrence: FR)
  Receive Date: 20180312
  Receipt Date: 20181113
  Transmission Date: 20190204
  Serious: Yes (Life-Threatening, Hospitalization, Other)
  Sender: FDA-Public Use
  Company Number: FR-MYLANLABS-2018M1016574

PATIENT
  Age: 87 Year
  Sex: Female
  Weight: 71.2 kg

DRUGS (18)
  1. DIPROSONE [Concomitant]
     Active Substance: BETAMETHASONE DIPROPIONATE
     Indication: PRODUCT USED FOR UNKNOWN INDICATION
     Dosage: UNK
  2. OMEPRAZOLE. [Concomitant]
     Active Substance: OMEPRAZOLE
     Indication: HYPERTENSION
     Dosage: UNK
     Route: 048
  3. VALSARTAN. [Suspect]
     Active Substance: VALSARTAN
     Dosage: UNK
     Route: 048
     Dates: start: 201801
  4. BISOPROLOL [Suspect]
     Active Substance: BISOPROLOL
     Indication: HYPERTENSION
     Dosage: UNK
     Route: 048
  5. ATARAX [Suspect]
     Active Substance: HYDROXYZINE HYDROCHLORIDE
     Indication: DEPRESSION
     Dosage: 1 DF, QD
     Route: 048
     Dates: start: 201801, end: 201801
  6. TRAMADOL. [Suspect]
     Active Substance: TRAMADOL
     Indication: PAIN
     Dosage: UNK
     Route: 048
  7. TRAMADOL. [Suspect]
     Active Substance: TRAMADOL
     Dosage: 40 MG, QD
     Route: 048
     Dates: start: 201801
  8. FUROSEMIDE ZENTIVA [Suspect]
     Active Substance: FUROSEMIDE
     Indication: HYPERTENSION
     Dosage: 500 MG, QD
     Route: 048
     Dates: start: 20171221, end: 20180117
  9. BISOPROLOL BIOGARAN [Suspect]
     Active Substance: BISOPROLOL FUMARATE
     Indication: HYPERTENSION
     Dosage: 1500 MG, UNK
     Route: 048
  10. XYLOCAINE                          /00033402/ [Concomitant]
     Active Substance: LIDOCAINE HYDROCHLORIDE
     Indication: PRODUCT USED FOR UNKNOWN INDICATION
     Dosage: UNK
     Route: 048
  11. FUROSEMIDE ZENTIVA [Suspect]
     Active Substance: FUROSEMIDE
     Dosage: 1500 MG, QD
     Route: 048
     Dates: start: 20171221, end: 20180117
  12. TRAMADOL. [Suspect]
     Active Substance: TRAMADOL
     Indication: HYPERTENSION
     Dosage: 1500 MG, QD
     Route: 048
     Dates: start: 20171221, end: 20180117
  13. VALSARTAN. [Suspect]
     Active Substance: VALSARTAN
     Indication: HYPERTENSION
     Dosage: 40 MG, QD
     Route: 048
     Dates: start: 201801, end: 201801
  14. AERIUS                             /01009701/ [Suspect]
     Active Substance: EBASTINE
     Indication: PRODUCT USED FOR UNKNOWN INDICATION
     Dosage: 1 DF, QD
     Route: 048
     Dates: start: 201801, end: 201801
  15. BISOPROLOL BIOGARAN [Concomitant]
     Active Substance: BISOPROLOL FUMARATE
     Indication: HYPERTENSION
     Dosage: UNK
     Route: 048
  16. BISOPROLOL BIOGARAN [Suspect]
     Active Substance: BISOPROLOL FUMARATE
     Dosage: UNK
     Route: 048
  17. PREVISCAN                          /00789001/ [Concomitant]
     Active Substance: FLUINDIONE
     Indication: PRODUCT USED FOR UNKNOWN INDICATION
     Dosage: UNK
  18. BISOPROLOL FUMARATE. [Concomitant]
     Active Substance: BISOPROLOL FUMARATE
     Indication: HYPERTENSION
     Dosage: UNK
     Route: 048

REACTIONS (4)
  - Acute kidney injury [Recovering/Resolving]
  - Dehydration [Recovering/Resolving]
  - Hypokalaemia [Recovered/Resolved]
  - Weight decreased [Recovering/Resolving]

NARRATIVE: CASE EVENT DATE: 201801
